FAERS Safety Report 19375066 (Version 1)
Quarter: 2021Q2

REPORT INFORMATION
  Report Type: Spontaneous
  Country: SE (occurrence: SE)
  Receive Date: 20210604
  Receipt Date: 20210604
  Transmission Date: 20210717
  Serious: Yes (Disabling)
  Sender: FDA-Public Use
  Company Number: SE-MYLANLABS-2021M1032138

PATIENT
  Age: 40 Year
  Sex: Male

DRUGS (2)
  1. TRANEXAMIC ACID. [Suspect]
     Active Substance: TRANEXAMIC ACID
     Indication: SKIN HYPERPIGMENTATION
     Dosage: 500 MILLIGRAM, QD
     Route: 048
     Dates: start: 20201109, end: 20201212
  2. OTEZLA [Concomitant]
     Active Substance: APREMILAST
     Dosage: 60 MILLIGRAM, QD

REACTIONS (2)
  - Condition aggravated [Not Recovered/Not Resolved]
  - Aphthous ulcer [Not Recovered/Not Resolved]

NARRATIVE: CASE EVENT DATE: 20201204
